FAERS Safety Report 22752406 (Version 4)
Quarter: 2024Q3

REPORT INFORMATION
  Report Type: Spontaneous
  Country: AU (occurrence: AU)
  Receive Date: 20230726
  Receipt Date: 20240909
  Transmission Date: 20241017
  Serious: Yes (Other)
  Sender: RANBAXY
  Company Number: AU-SUN PHARMACEUTICAL INDUSTRIES LTD-2023R1-399631

PATIENT
  Age: 36 Year
  Sex: Male

DRUGS (1)
  1. MINOXIDIL [Suspect]
     Active Substance: MINOXIDIL
     Indication: Product used for unknown indication
     Dosage: UNK (500-1500 MG)
     Route: 048

REACTIONS (6)
  - Overdose [Unknown]
  - Hypotension [Recovered/Resolved]
  - Toxicity to various agents [Unknown]
  - Pulmonary oedema [Recovered/Resolved]
  - Hyperlactacidaemia [Recovered/Resolved]
  - Acute kidney injury [Recovered/Resolved]
